FAERS Safety Report 18108302 (Version 7)
Quarter: 2023Q2

REPORT INFORMATION
  Report Type: Report from Study
  Country: CA (occurrence: CA)
  Receive Date: 20200804
  Receipt Date: 20230615
  Transmission Date: 20230722
  Serious: Yes (Other)
  Sender: FDA-Public Use
  Company Number: PHHY2018CA129878

PATIENT
  Age: 44 Year
  Sex: Female

DRUGS (18)
  1. COSENTYX [Suspect]
     Active Substance: SECUKINUMAB
     Indication: Psoriasis
     Dosage: 300 MG, QMO
     Route: 058
     Dates: start: 20180621
  2. COSENTYX [Suspect]
     Active Substance: SECUKINUMAB
     Indication: Psoriatic arthropathy
     Dosage: UNK
     Route: 058
     Dates: start: 20180914
  3. COSENTYX [Suspect]
     Active Substance: SECUKINUMAB
     Dosage: 450 MG, QMO
     Route: 058
  4. COSENTYX [Suspect]
     Active Substance: SECUKINUMAB
     Dosage: 450 MG, QMO
     Route: 058
  5. COSENTYX [Suspect]
     Active Substance: SECUKINUMAB
     Dosage: 300 MG, QMO
     Route: 058
     Dates: end: 20200314
  6. LEFLUNOMIDE [Concomitant]
     Active Substance: LEFLUNOMIDE
     Indication: Product used for unknown indication
     Dosage: UNK, QD
     Route: 065
     Dates: end: 201805
  7. NAPROXEN [Concomitant]
     Active Substance: NAPROXEN
     Indication: Product used for unknown indication
     Dosage: UNK
     Route: 065
     Dates: start: 201805
  8. NAPROXEN [Concomitant]
     Active Substance: NAPROXEN
     Dosage: UNK
     Route: 065
  9. IBUPROFEN [Concomitant]
     Active Substance: IBUPROFEN
     Indication: Product used for unknown indication
     Dosage: UNK
     Route: 065
     Dates: start: 201805
  10. IBUPROFEN [Concomitant]
     Active Substance: IBUPROFEN
     Dosage: UNK
     Route: 065
  11. TYLENOL [Concomitant]
     Active Substance: ACETAMINOPHEN
     Indication: Product used for unknown indication
     Dosage: 3-4 DF, QD
     Route: 048
     Dates: start: 201805
  12. PLAQUENIL [Concomitant]
     Active Substance: HYDROXYCHLOROQUINE SULFATE
     Indication: Product used for unknown indication
     Dosage: UNK UNK, QD
     Route: 065
  13. PREDNISONE [Concomitant]
     Active Substance: PREDNISONE
     Indication: Product used for unknown indication
     Dosage: UNK, PRN
     Route: 065
  14. CELEBREX [Concomitant]
     Active Substance: CELECOXIB
     Indication: Product used for unknown indication
     Dosage: UNK
     Route: 065
  15. MELOXICAM [Concomitant]
     Active Substance: MELOXICAM
     Indication: Product used for unknown indication
     Dosage: UNK
     Route: 065
  16. ARAVA [Concomitant]
     Active Substance: LEFLUNOMIDE
     Indication: Product used for unknown indication
     Dosage: UNK
     Route: 065
  17. TALTZ [Concomitant]
     Active Substance: IXEKIZUMAB
     Indication: Product used for unknown indication
     Dosage: UNK
     Route: 058
  18. CODEINE PHOSPHATE [Concomitant]
     Active Substance: CODEINE PHOSPHATE
     Indication: Product used for unknown indication
     Dosage: UNK, QD (DOSE 6)
     Route: 048

REACTIONS (23)
  - Polyarthritis [Unknown]
  - Arthralgia [Recovering/Resolving]
  - Joint swelling [Unknown]
  - C-reactive protein abnormal [Unknown]
  - Gait disturbance [Unknown]
  - Haemoglobin abnormal [Unknown]
  - Mean cell volume abnormal [Unknown]
  - Mean cell haemoglobin concentration abnormal [Unknown]
  - Red cell distribution width abnormal [Unknown]
  - Serum ferritin abnormal [Unknown]
  - Alanine aminotransferase abnormal [Unknown]
  - Platelet count abnormal [Unknown]
  - Musculoskeletal stiffness [Unknown]
  - Pain [Unknown]
  - Dysstasia [Unknown]
  - Grip strength decreased [Unknown]
  - Hypokinesia [Unknown]
  - Discomfort [Unknown]
  - Inflammation [Unknown]
  - Alopecia [Unknown]
  - Psoriasis [Unknown]
  - Incorrect dose administered [Unknown]
  - Drug ineffective [Unknown]
